FAERS Safety Report 11811298 (Version 1)
Quarter: 2015Q4

REPORT INFORMATION
  Report Type: Report from Study
  Country: GR (occurrence: GR)
  Receive Date: 20151208
  Receipt Date: 20151208
  Transmission Date: 20160305
  Serious: Yes (Other)
  Sender: FDA-Public Use
  Company Number: PHHY2015GR158056

PATIENT
  Age: 57 Year
  Sex: Female

DRUGS (2)
  1. SANDOSTATIN LAR DEPOT [Suspect]
     Active Substance: OCTREOTIDE ACETATE
     Indication: NEUROENDOCRINE TUMOUR
     Dosage: 50-100 MG, UNK
     Route: 058
  2. SANDOSTATIN LAR DEPOT [Suspect]
     Active Substance: OCTREOTIDE ACETATE
     Dosage: 30 MG, QMO  (EVERY 28 DAYS)
     Route: 065
     Dates: start: 201103, end: 201110

REACTIONS (8)
  - Gastrointestinal oedema [Unknown]
  - Malignant neoplasm progression [Unknown]
  - Ascites [Unknown]
  - Abdominal adhesions [Unknown]
  - Blood chromogranin A increased [Unknown]
  - Metastases to liver [Unknown]
  - Diarrhoea [Unknown]
  - Incorrect route of drug administration [Unknown]
